FAERS Safety Report 20116160 (Version 1)
Quarter: 2021Q4

REPORT INFORMATION
  Report Type: Spontaneous
  Country: FR (occurrence: FR)
  Receive Date: 20211126
  Receipt Date: 20211126
  Transmission Date: 20220303
  Serious: Yes (Other)
  Sender: FDA-Public Use
  Company Number: FR-ABBVIE-21K-056-4176756-00

PATIENT
  Age: 56 Year
  Sex: Female

DRUGS (2)
  1. VALPROATE SODIUM [Suspect]
     Active Substance: VALPROATE SODIUM
     Indication: Epilepsy
     Route: 065
  2. VALPROATE SODIUM [Suspect]
     Active Substance: VALPROATE SODIUM
     Route: 065

REACTIONS (6)
  - Cerebrovascular accident [Unknown]
  - Hypoacusis [Unknown]
  - Cyst [Unknown]
  - Haemangioma [Unknown]
  - Dysstasia [Unknown]
  - Dizziness [Unknown]
